FAERS Safety Report 6781218-X (Version None)
Quarter: 2010Q2

REPORT INFORMATION
  Report Type: 
  Country: None (occurrence: None)
  Receive Date: 20100621
  Receipt Date: 20100613
  Transmission Date: 20101027
  Serious: Yes (Life-Threatening)
  Sender: FDA-Public Use
  Company Number: CN-BRISTOL-MYERS SQUIBB COMPANY-15152820

PATIENT
  Age: 63 Year
  Sex: Male

DRUGS (3)
  1. CETUXIMAB [Suspect]
     Indication: HEAD AND NECK CANCER
     Route: 042
     Dates: start: 20100315, end: 20100612
  2. CISPLATIN [Suspect]
     Indication: HEAD AND NECK CANCER
     Route: 042
     Dates: start: 20100315, end: 20100612
  3. FLUOROURACIL [Suspect]
     Indication: HEAD AND NECK CANCER
     Route: 042
     Dates: start: 20100315, end: 20100612

REACTIONS (11)
  - CENTRAL NERVOUS SYSTEM LESION [None]
  - CEREBRAL HAEMORRHAGE [None]
  - CEREBRAL INFARCTION [None]
  - COMA [None]
  - ELECTROLYTE IMBALANCE [None]
  - HYPOCALCAEMIA [None]
  - HYPOCHLORAEMIA [None]
  - HYPOMAGNESAEMIA [None]
  - HYPONATRAEMIA [None]
  - METASTASES TO CENTRAL NERVOUS SYSTEM [None]
  - PYREXIA [None]
